FAERS Safety Report 6056014-1 (Version None)
Quarter: 2009Q1

REPORT INFORMATION
  Report Type: 
  Country: None (occurrence: None)
  Receive Date: 20090126
  Receipt Date: 20090108
  Transmission Date: 20090719
  Serious: Yes (Other)
  Sender: FDA-Public Use
  Company Number: 100#03#2008-03582

PATIENT
  Age: 16 Year
  Sex: Male

DRUGS (1)
  1. ERYTHROMYCIN [Suspect]
     Dosage: 500 MG TWICE DAILY ORAL
     Route: 048
     Dates: start: 20071018, end: 20080101

REACTIONS (2)
  - HEADACHE [None]
  - PHOTOPHOBIA [None]
